FAERS Safety Report 25806654 (Version 1)
Quarter: 2025Q3

REPORT INFORMATION
  Report Type: Spontaneous
  Country: US (occurrence: US)
  Receive Date: 20250916
  Receipt Date: 20250916
  Transmission Date: 20251021
  Serious: Yes (Other)
  Sender: LABORATOIRES SERB
  Company Number: US-SERB S.A.S.-2184610

PATIENT
  Sex: Male

DRUGS (1)
  1. VORAXAZE [Suspect]
     Active Substance: GLUCARPIDASE
     Indication: Toxicity to various agents

REACTIONS (3)
  - Therapeutic product effect incomplete [Unknown]
  - Prescribed overdose [Unknown]
  - Off label use [Unknown]
